FAERS Safety Report 8838228 (Version 3)
Quarter: 2013Q1

REPORT INFORMATION
  Report Type: Spontaneous
  Country: US (occurrence: US)
  Receive Date: 20121012
  Receipt Date: 20130104
  Transmission Date: 20140127
  Serious: Yes (Death, Hospitalization, Other)
  Sender: FDA-Public Use
  Company Number: US-INCYTE CORPORATION-2012IN002037

PATIENT
  Age: 74 None
  Sex: Male
  Weight: 63.49 kg

DRUGS (5)
  1. JAKAFI [Suspect]
     Indication: MYELOFIBROSIS
     Dosage: 15 MG, BID
     Route: 048
     Dates: start: 20120117
  2. RESTORIL [Concomitant]
     Dosage: UNK
  3. K-DUR [Concomitant]
     Dosage: UNK
  4. XANAX [Concomitant]
     Dosage: UNK, PRN
  5. IMDUR [Concomitant]
     Dosage: UNK

REACTIONS (13)
  - Death [Fatal]
  - Intestinal haemorrhage [Unknown]
  - Epistaxis [Unknown]
  - Thrombocytopenia [Unknown]
  - Anaemia [Not Recovered/Not Resolved]
  - Vomiting [Unknown]
  - Liver function test abnormal [Unknown]
  - Hyperkalaemia [Recovered/Resolved]
  - Hyponatraemia [Unknown]
  - Malnutrition [Unknown]
  - Malaise [Unknown]
  - Fatigue [Unknown]
  - Pyrexia [None]
